FAERS Safety Report 22165022 (Version 2)
Quarter: 2023Q2

REPORT INFORMATION
  Report Type: Spontaneous
  Country: DE (occurrence: None)
  Receive Date: 20230403
  Receipt Date: 20230406
  Transmission Date: 20230722
  Serious: Yes (Death, Hospitalization, Other)
  Sender: FDA-Public Use
  Company Number: DE-ROCHE-3317611

PATIENT
  Age: 60 Year
  Sex: Female

DRUGS (2)
  1. OCRELIZUMAB [Suspect]
     Active Substance: OCRELIZUMAB
     Indication: Secondary progressive multiple sclerosis
     Route: 042
     Dates: start: 20190509, end: 20220905
  2. SPASMEX (GERMANY) [Concomitant]

REACTIONS (9)
  - Off label use [Unknown]
  - Cerebral haemorrhage [Fatal]
  - Anaemia [Unknown]
  - Blood creatinine increased [Unknown]
  - Coma [Unknown]
  - Bladder disorder [Unknown]
  - Epilepsy [Unknown]
  - Disturbance in attention [Unknown]
  - Cerebral haemorrhage [Unknown]

NARRATIVE: CASE EVENT DATE: 20221024
